FAERS Safety Report 20546874 (Version 3)
Quarter: 2022Q1

REPORT INFORMATION
  Report Type: Spontaneous
  Country: US (occurrence: None)
  Receive Date: 20220303
  Receipt Date: 20220324
  Transmission Date: 20220423
  Serious: Yes (Hospitalization)
  Sender: FDA-Public Use
  Company Number: US-ROCHE-3037259

PATIENT
  Age: 57 Year
  Sex: Female
  Weight: 113.50 kg

DRUGS (7)
  1. ACTEMRA [Suspect]
     Active Substance: TOCILIZUMAB
     Indication: Ill-defined disorder
     Route: 058
     Dates: end: 202110
  2. ACTEMRA [Suspect]
     Active Substance: TOCILIZUMAB
  3. ACTEMRA [Suspect]
     Active Substance: TOCILIZUMAB
     Indication: Polymyalgia rheumatica
     Route: 058
  4. ACTEMRA [Suspect]
     Active Substance: TOCILIZUMAB
  5. ACTEMRA [Suspect]
     Active Substance: TOCILIZUMAB
     Route: 058
     Dates: start: 202107
  6. ACTEMRA [Suspect]
     Active Substance: TOCILIZUMAB
  7. ANASTROZOLE [Suspect]
     Active Substance: ANASTROZOLE
     Indication: Product used for unknown indication
     Route: 065
     Dates: start: 20220218, end: 20220221

REACTIONS (8)
  - Breast cancer [Recovered/Resolved]
  - COVID-19 [Recovered/Resolved]
  - Swelling [Unknown]
  - Product dose omission issue [Unknown]
  - Exposure via skin contact [Unknown]
  - Drug delivery system malfunction [Unknown]
  - Product complaint [Unknown]
  - Off label use [Unknown]

NARRATIVE: CASE EVENT DATE: 20210913
